FAERS Safety Report 19524455 (Version 1)
Quarter: 2021Q3

REPORT INFORMATION
  Report Type: Spontaneous
  Country: ES (occurrence: ES)
  Receive Date: 20210712
  Receipt Date: 20210712
  Transmission Date: 20211014
  Serious: Yes (Hospitalization, Other)
  Sender: FDA-Public Use
  Company Number: ES-GILEAD-2021-0537276

PATIENT
  Age: 49 Year
  Sex: Female

DRUGS (12)
  1. METHADONE [Concomitant]
     Active Substance: METHADONE HYDROCHLORIDE
     Indication: DRUG ABUSER
  2. LOSARTAN/HYDROCHLOROTHIAZIDE [Concomitant]
     Active Substance: HYDROCHLOROTHIAZIDE\LOSARTAN
  3. DESCOVY [Suspect]
     Active Substance: EMTRICITABINE\TENOFOVIR ALAFENAMIDE FUMARATE
     Indication: HIV INFECTION
     Route: 065
  4. DARUNAVIR [Concomitant]
     Active Substance: DARUNAVIR
  5. IPRATROPIUM [Concomitant]
     Active Substance: IPRATROPIUM
  6. PARACETAMOL + TRAMADOL [Concomitant]
     Active Substance: ACETAMINOPHEN\TRAMADOL
  7. LORMETAZEPAM [Concomitant]
     Active Substance: LORMETAZEPAM
  8. ALPRAZOLAM. [Concomitant]
     Active Substance: ALPRAZOLAM
  9. ETORICOXIB. [Concomitant]
     Active Substance: ETORICOXIB
  10. AMITRIPTYLINE [Concomitant]
     Active Substance: AMITRIPTYLINE
  11. ATORVASTATIN [Concomitant]
     Active Substance: ATORVASTATIN
  12. BECLOMETASONE DIPROPIONATE AND FORMOTEROL [Concomitant]

REACTIONS (4)
  - Overdose [Unknown]
  - Depressed level of consciousness [Unknown]
  - Musculoskeletal pain [Unknown]
  - Arthralgia [Unknown]
